FAERS Safety Report 7845831-0 (Version None)
Quarter: 2011Q4

REPORT INFORMATION
  Report Type: 
  Country: None (occurrence: None)
  Receive Date: 20111025
  Receipt Date: 20111020
  Transmission Date: 20120403
  Serious: Yes (Life-Threatening)
  Sender: FDA-Public Use
  Company Number: FR-ASTRAZENECA-2011SE63518

PATIENT
  Age: 20299 Day
  Sex: Female

DRUGS (7)
  1. AMOXICILLIN TRIHYDRATE [Concomitant]
     Route: 048
  2. XANAX [Concomitant]
     Route: 048
  3. AMOXICILLIN TRIHYDRATE [Concomitant]
     Indication: ANTIBIOTIC PROPHYLAXIS
     Route: 048
     Dates: start: 20110911, end: 20110916
  4. COLOKIT [Suspect]
     Indication: ENDOSCOPY
     Route: 048
     Dates: start: 20110911, end: 20110911
  5. GENTAMICIN [Concomitant]
     Indication: ANTIBIOTIC PROPHYLAXIS
     Route: 042
     Dates: start: 20110911, end: 20110911
  6. SOTALOL HCL [Concomitant]
     Indication: HYPERTENSION
     Route: 048
  7. DIPRIVAN [Suspect]
     Indication: ANAESTHESIA
     Route: 042
     Dates: start: 20110912, end: 20110912

REACTIONS (2)
  - CARDIOGENIC SHOCK [None]
  - METABOLIC ACIDOSIS [None]
